FAERS Safety Report 15017066 (Version 1)
Quarter: 2018Q2

REPORT INFORMATION
  Report Type: Spontaneous
  Country: US (occurrence: US)
  Receive Date: 20180615
  Receipt Date: 20180615
  Transmission Date: 20180711
  Serious: No
  Sender: FDA-Public Use
  Company Number: US-PFIZER INC-2018242203

PATIENT
  Age: 21 Year
  Sex: Male

DRUGS (18)
  1. SIROLIMUS. [Suspect]
     Active Substance: SIROLIMUS
     Dosage: UNK
     Dates: end: 20160807
  2. CYCLOPHOSPHAMIDE. [Concomitant]
     Active Substance: CYCLOPHOSPHAMIDE
     Dosage: 13 MG/M2, UNK
     Dates: start: 20160524, end: 20160531
  3. TEMOZOLOMIDE. [Concomitant]
     Active Substance: TEMOZOLOMIDE
  4. SIROLIMUS. [Suspect]
     Active Substance: SIROLIMUS
     Dosage: 4 MG,
     Dates: start: 20160202
  5. SIROLIMUS. [Suspect]
     Active Substance: SIROLIMUS
     Dosage: 6 MG, UNK
     Dates: start: 20160418
  6. IRINOTECAN [Concomitant]
     Active Substance: IRINOTECAN
     Dosage: UNK, CYCLIC; Q3 WEEKS
     Dates: start: 20160125, end: 20160425
  7. SIROLIMUS. [Suspect]
     Active Substance: SIROLIMUS
     Dosage: 5 MG, UNK
     Dates: start: 20160302
  8. IRINOTECAN [Concomitant]
     Active Substance: IRINOTECAN
  9. TEMOZOLOMIDE. [Concomitant]
     Active Substance: TEMOZOLOMIDE
     Dosage: UNK, CYCLIC  Q3 WEEKS
     Dates: start: 20160125, end: 20160425
  10. ETOPOSIDE. [Concomitant]
     Active Substance: ETOPOSIDE
     Dosage: UNK, ALTERNATE DAY
     Dates: start: 20160510
  11. ACYCLOVIR. [Concomitant]
     Active Substance: ACYCLOVIR
     Indication: PROPHYLAXIS
     Dosage: UNK
     Dates: start: 20160607
  12. SIROLIMUS. [Suspect]
     Active Substance: SIROLIMUS
     Dosage: UNK TARGET 5-15
     Dates: start: 20151214
  13. VALPROATE [Concomitant]
     Active Substance: VALPROIC ACID
     Dosage: UNK; CONTINUOUS
     Dates: start: 20160425
  14. ETOPOSIDE. [Concomitant]
     Active Substance: ETOPOSIDE
     Dosage: UNK
     Dates: start: 20160425
  15. CYCLOPHOSPHAMIDE. [Concomitant]
     Active Substance: CYCLOPHOSPHAMIDE
     Dosage: 25 MG, DAILY
     Dates: start: 20160809
  16. SIROLIMUS. [Suspect]
     Active Substance: SIROLIMUS
     Dosage: UNK
     Dates: start: 20160104
  17. CYCLOPHOSPHAMIDE. [Concomitant]
     Active Substance: CYCLOPHOSPHAMIDE
     Dosage: UNK
     Dates: start: 20160425
  18. SIROLIMUS. [Suspect]
     Active Substance: SIROLIMUS
     Dosage: UNK (INCREASED TO 100% )

REACTIONS (3)
  - Impaired quality of life [Unknown]
  - Anal fissure [Unknown]
  - Disease progression [Unknown]

NARRATIVE: CASE EVENT DATE: 20160425
